FAERS Safety Report 5184826-5 (Version None)
Quarter: 2006Q4

REPORT INFORMATION
  Report Type: 
  Country: None (occurrence: None)
  Receive Date: 20061220
  Receipt Date: 20060427
  Transmission Date: 20070319
  Serious: No
  Sender: FDA-Public Use
  Company Number: US-GLAXOSMITHKLINE-A0603506A

PATIENT
  Age: 25 Year
  Sex: Female

DRUGS (2)
  1. NICODERM CQ [Suspect]
     Dosage: 14MG PER DAY
     Route: 062
  2. NICODERM CQ [Suspect]
     Dosage: 21MG PER DAY
     Route: 062

REACTIONS (4)
  - APPLICATION SITE ERYTHEMA [None]
  - APPLICATION SITE RASH [None]
  - DERMATITIS CONTACT [None]
  - DRUG ADMINISTRATION ERROR [None]
